FAERS Safety Report 5334674-8 (Version None)
Quarter: 2007Q2

REPORT INFORMATION
  Report Type: 
  Country: None (occurrence: None)
  Receive Date: 20070525
  Receipt Date: 20070521
  Transmission Date: 20071010
  Serious: Yes (Other)
  Sender: FDA-Public Use
  Company Number: D0052809A

PATIENT
  Age: 40 Year
  Sex: Male

DRUGS (5)
  1. SEROXAT [Suspect]
     Indication: DEPRESSION
     Dosage: 10MG PER DAY
     Route: 048
     Dates: start: 20070328, end: 20070402
  2. PEGASYS [Concomitant]
     Indication: HEPATITIS C
     Dosage: 180UG WEEKLY
     Route: 058
  3. COPEGUS [Concomitant]
     Indication: HEPATITIS C
     Dosage: 200MG TWICE PER DAY
     Route: 048
  4. DIPIPERON [Concomitant]
     Route: 048
  5. LORAZEPAM [Concomitant]
     Route: 065
     Dates: start: 20070301

REACTIONS (3)
  - MOBILITY DECREASED [None]
  - MYALGIA [None]
  - RHABDOMYOLYSIS [None]
